FAERS Safety Report 4478656-7 (Version None)
Quarter: 2004Q4

REPORT INFORMATION
  Report Type: 
  Country: None (occurrence: None)
  Receive Date: 20040923
  Receipt Date: 20040527
  Transmission Date: 20050328
  Serious: No
  Sender: FDA-Public Use
  Company Number: USA040568705

PATIENT
  Age: 85 Year
  Sex: Female

DRUGS (1)
  1. FORTEO [Suspect]
     Dates: start: 20030101

REACTIONS (1)
  - ILL-DEFINED DISORDER [None]
